FAERS Safety Report 8196915-1 (Version None)
Quarter: 2012Q1

REPORT INFORMATION
  Report Type: 
  Country: None (occurrence: None)
  Receive Date: 20120309
  Receipt Date: 20120305
  Transmission Date: 20120608
  Serious: Yes (Other)
  Sender: FDA-Public Use
  Company Number: US-CELGENEUS-163-21880-12030706

PATIENT
  Sex: Female
  Weight: 52.2 kg

DRUGS (2)
  1. EXJADE [Concomitant]
     Dosage: 1000 MILLIGRAM
     Route: 065
     Dates: start: 20110928
  2. REVLIMID [Suspect]
     Indication: LYMPHATIC DISORDER
     Dosage: 10 MILLIGRAM
     Route: 048
     Dates: start: 20110923

REACTIONS (4)
  - HEPATOMEGALY [None]
  - ABDOMINAL PAIN UPPER [None]
  - HEPATIC ENZYME INCREASED [None]
  - DEAFNESS [None]
